FAERS Safety Report 10478015 (Version 1)
Quarter: 2014Q3

REPORT INFORMATION
  Report Type: Spontaneous
  Country: US (occurrence: None)
  Receive Date: 20140925
  Receipt Date: 20140925
  Transmission Date: 20150326
  Serious: Yes (Other)
  Sender: FDA-Public Use
  Company Number: None

PATIENT
  Age: 36 Year
  Sex: Male

DRUGS (9)
  1. IRON [Concomitant]
     Active Substance: IRON
  2. Y...GO [Concomitant]
  3. BUSPIRONE [Suspect]
     Active Substance: BUSPIRONE HYDROCHLORIDE
     Indication: BACK PAIN
     Route: 048
     Dates: start: 20140410, end: 201405
  4. VITAMIN C [Concomitant]
     Active Substance: ASCORBIC ACID
  5. SELENIUM [Concomitant]
     Active Substance: SELENIUM
  6. BUSPIRONE [Suspect]
     Active Substance: BUSPIRONE HYDROCHLORIDE
     Indication: ANXIETY
     Route: 048
     Dates: start: 20140410, end: 201405
  7. BUSPIRONE [Suspect]
     Active Substance: BUSPIRONE HYDROCHLORIDE
     Indication: PAIN
     Route: 048
     Dates: start: 20140410, end: 201405
  8. MAGNESIUM [Concomitant]
     Active Substance: MAGNESIUM
  9. IBUPROFEN. [Concomitant]
     Active Substance: IBUPROFEN

REACTIONS (4)
  - Chest pain [None]
  - Headache [None]
  - Dizziness [None]
  - Vertigo [None]

NARRATIVE: CASE EVENT DATE: 2014
